FAERS Safety Report 10142606 (Version 1)
Quarter: 2014Q2

REPORT INFORMATION
  Report Type: Spontaneous
  Country: GB (occurrence: None)
  Receive Date: 20140425
  Receipt Date: 20140425
  Transmission Date: 20141212
  Serious: Yes (Other)
  Sender: FDA-Public Use
  Company Number: AUR-APL-2014-04890

PATIENT
  Age: 54 Year
  Sex: Male

DRUGS (1)
  1. NAPROXEN (NAPROXEN) [Suspect]
     Indication: PRODUCT USED FOR UNKNOWN INDICATION
     Dates: start: 20140318

REACTIONS (2)
  - Rectal haemorrhage [None]
  - Gastric haemorrhage [None]
